FAERS Safety Report 15655227 (Version 1)
Quarter: 2018Q4

REPORT INFORMATION
  Report Type: Spontaneous
  Country: US (occurrence: US)
  Receive Date: 20181114
  Receipt Date: 20181114
  Transmission Date: 20190205
  Serious: No
  Sender: FDA-Public Use
  Company Number: None

PATIENT
  Age: 92 Year
  Sex: Female

DRUGS (1)
  1. ODOMZO [Suspect]
     Active Substance: SONIDEGIB
     Indication: BASAL CELL CARCINOMA
     Dosage: ON EMPTY STOMACH AT LEAST  1 HR BEFORE OR 2 HRS AFTER MEALS AS DIRECTED
     Route: 048
     Dates: start: 201808

REACTIONS (2)
  - Fall [None]
  - Urinary tract infection [None]
